FAERS Safety Report 11327865 (Version 1)
Quarter: 2015Q3

REPORT INFORMATION
  Report Type: Spontaneous
  Country: DE (occurrence: DE)
  Receive Date: 20150731
  Receipt Date: 20150731
  Transmission Date: 20151125
  Serious: Yes (Other)
  Sender: FDA-Public Use
  Company Number: DE-PFIZER INC-2015246303

PATIENT
  Age: 66 Year
  Sex: Male
  Weight: 74 kg

DRUGS (3)
  1. IRINOTECAN HCL [Suspect]
     Active Substance: IRINOTECAN HYDROCHLORIDE
  2. 5-FLUOROURACIL [Concomitant]
     Active Substance: FLUOROURACIL
     Indication: COLORECTAL CANCER METASTATIC
     Dosage: 2000 MG/M2 (FREQUENCY UNSPECIFIED)
     Route: 042
     Dates: start: 20150526, end: 20150616
  3. 5-FLUOROURACIL [Concomitant]
     Active Substance: FLUOROURACIL
     Dosage: ADMINISTRATION WITH FOLFIRI 08MAY2015
     Route: 042
     Dates: start: 20150508

REACTIONS (3)
  - Renal failure [Recovered/Resolved]
  - Infection [Unknown]
  - Azotaemia [Recovered/Resolved]

NARRATIVE: CASE EVENT DATE: 20150624
